FAERS Safety Report 19352581 (Version 5)
Quarter: 2022Q2

REPORT INFORMATION
  Report Type: Spontaneous
  Country: JP (occurrence: JP)
  Receive Date: 20210531
  Receipt Date: 20220615
  Transmission Date: 20220721
  Serious: Yes (Hospitalization, Other)
  Sender: FDA-Public Use
  Company Number: JP-BRISTOL-MYERS SQUIBB COMPANY-BMS-2021-051706

PATIENT
  Age: 81 Year
  Sex: Female

DRUGS (13)
  1. OPDIVO [Suspect]
     Active Substance: NIVOLUMAB
     Indication: Malignant melanoma
     Dosage: UNK
     Route: 041
     Dates: start: 20190726, end: 20191202
  2. OPDIVO [Suspect]
     Active Substance: NIVOLUMAB
     Route: 041
     Dates: start: 20201102, end: 20210125
  3. DACARBAZINE [Concomitant]
     Active Substance: DACARBAZINE
     Indication: Malignant melanoma
     Dosage: UNK
     Route: 065
     Dates: start: 20200120
  4. DACARBAZINE [Concomitant]
     Active Substance: DACARBAZINE
     Dosage: UNK
     Route: 065
     Dates: start: 20200803
  5. NIMUSTINE HYDROCHLORIDE [Concomitant]
     Active Substance: NIMUSTINE HYDROCHLORIDE
     Indication: Malignant melanoma
     Dosage: UNK
     Route: 065
  6. NIMUSTINE HYDROCHLORIDE [Concomitant]
     Active Substance: NIMUSTINE HYDROCHLORIDE
     Dosage: UNK
     Route: 065
  7. NIMUSTINE HYDROCHLORIDE [Concomitant]
     Active Substance: NIMUSTINE HYDROCHLORIDE
     Route: 065
  8. VINCRISTINE SULFATE [Concomitant]
     Active Substance: VINCRISTINE SULFATE
     Indication: Malignant melanoma
     Dosage: UNK
     Route: 065
  9. VINCRISTINE SULFATE [Concomitant]
     Active Substance: VINCRISTINE SULFATE
     Dosage: UNK
     Route: 065
  10. VINCRISTINE SULFATE [Concomitant]
     Active Substance: VINCRISTINE SULFATE
     Route: 065
  11. INTERFERON BETA [Concomitant]
     Active Substance: INTERFERON BETA
     Indication: Malignant melanoma
     Dosage: UNK
     Route: 065
  12. INTERFERON BETA [Concomitant]
     Active Substance: INTERFERON BETA
     Dosage: UNK
     Route: 065
  13. INTERFERON BETA [Concomitant]
     Active Substance: INTERFERON BETA
     Route: 065

REACTIONS (2)
  - Type 1 diabetes mellitus [Recovering/Resolving]
  - Cytopenia [Unknown]

NARRATIVE: CASE EVENT DATE: 20200923
